FAERS Safety Report 8405176-7 (Version None)
Quarter: 2012Q2

REPORT INFORMATION
  Report Type: 
  Country: None (occurrence: None)
  Receive Date: 20120602
  Receipt Date: 20120520
  Transmission Date: 20120825
  Serious: No
  Sender: FDA-Public Use
  Company Number: US-BAYER-2012-052573

PATIENT
  Sex: Male

DRUGS (4)
  1. ASPIRIN [Suspect]
     Indication: ARTHRALGIA
     Dosage: UNK
     Route: 048
  2. ACETAMINOPHEN [Concomitant]
  3. ALEVE (CAPLET) [Suspect]
     Indication: ARTHRALGIA
     Dosage: UNK
     Route: 048
  4. IBUPROFEN (ADVIL) [Concomitant]

REACTIONS (1)
  - ARTHRALGIA [None]
